FAERS Safety Report 5520840-5 (Version None)
Quarter: 2007Q4

REPORT INFORMATION
  Report Type: 
  Country: None (occurrence: None)
  Receive Date: 20071119
  Receipt Date: 20071114
  Transmission Date: 20080405
  Serious: Yes (Hospitalization)
  Sender: FDA-Public Use
  Company Number: A0694502A

PATIENT
  Age: 65 Year
  Sex: Male

DRUGS (5)
  1. ADVAIR DISKUS 100/50 [Suspect]
     Indication: ASTHMA
     Route: 055
     Dates: start: 20070501
  2. CIPRO [Concomitant]
  3. VICOPROFEN [Concomitant]
  4. DOXEPIN HCL [Concomitant]
  5. ALEVE COLD AND SINUS [Concomitant]

REACTIONS (8)
  - DYSGEUSIA [None]
  - ECZEMA [None]
  - JOINT SWELLING [None]
  - OEDEMA PERIPHERAL [None]
  - ONYCHOMYCOSIS [None]
  - PSORIASIS [None]
  - RASH [None]
  - RASH MACULAR [None]
